FAERS Safety Report 15606592 (Version 1)
Quarter: 2018Q4

REPORT INFORMATION
  Report Type: Spontaneous
  Country: CA (occurrence: CA)
  Receive Date: 20181110
  Receipt Date: 20181110
  Transmission Date: 20190205
  Serious: No
  Sender: FDA-Public Use
  Company Number: None

PATIENT
  Age: 41 Year
  Sex: Female
  Weight: 67.5 kg

DRUGS (6)
  1. BUPROPION HCL XL 150MG [Suspect]
     Active Substance: BUPROPION HYDROCHLORIDE
     Indication: DEPRESSION
     Dosage: ?          QUANTITY:1 TABLET(S);?
     Route: 048
     Dates: start: 20180517, end: 20180901
  2. VITAMIN B12 [Concomitant]
     Active Substance: CYANOCOBALAMIN
  3. VITAMIN D SUBLINGUAL SPRAY [Concomitant]
  4. BUPROPION HCL XL 150MG [Suspect]
     Active Substance: BUPROPION HYDROCHLORIDE
     Indication: ANXIETY
     Dosage: ?          QUANTITY:1 TABLET(S);?
     Route: 048
     Dates: start: 20180517, end: 20180901
  5. RIZATRIPTAN. [Concomitant]
     Active Substance: RIZATRIPTAN
  6. IRON BISGLYCINATE [Concomitant]

REACTIONS (3)
  - Alopecia [None]
  - Anxiety [None]
  - Condition aggravated [None]

NARRATIVE: CASE EVENT DATE: 20180701
